FAERS Safety Report 7512118-5 (Version None)
Quarter: 2011Q2

REPORT INFORMATION
  Report Type: 
  Country: None (occurrence: None)
  Receive Date: 20110520
  Receipt Date: 20110505
  Transmission Date: 20111010
  Serious: Yes (Other)
  Sender: FDA-Public Use
  Company Number: AUR-APL-2011-01572

PATIENT
  Age: 74 Year
  Sex: Female
  Weight: 60 kg

DRUGS (7)
  1. DIHYDROCODEINE TARTRATE [Concomitant]
  2. FLUOXETINE HCL [Concomitant]
  3. ACETAMINOPHEN [Concomitant]
  4. RISEDRONATE SODIUM [Concomitant]
  5. GABAPENTIN [Suspect]
     Indication: RESTLESS LEGS SYNDROME
     Dosage: 100MG-DAILY-ORAL
     Route: 048
     Dates: start: 20110404, end: 20110409
  6. D-PENICILLAMINE [Concomitant]
  7. LANSOPRAZOLE [Concomitant]

REACTIONS (2)
  - ATRIAL FIBRILLATION [None]
  - CARDIAC FAILURE CONGESTIVE [None]
